FAERS Safety Report 16737606 (Version 2)
Quarter: 2019Q3

REPORT INFORMATION
  Report Type: Spontaneous
  Country: AU (occurrence: AU)
  Receive Date: 20190823
  Receipt Date: 20190904
  Transmission Date: 20191005
  Serious: Yes (Other)
  Sender: FDA-Public Use
  Company Number: AU-GE HEALTHCARE LIFE SCIENCES-2019CSU004246

PATIENT

DRUGS (2)
  1. OMNIPAQUE [Suspect]
     Active Substance: IOHEXOL
     Indication: COMPUTERISED TOMOGRAM ABDOMEN
     Dosage: 100 ML  AT THE RATE OF 3 ML/SEC; SINGLE
     Route: 042
     Dates: start: 20190815, end: 20190815
  2. OMNIPAQUE [Suspect]
     Active Substance: IOHEXOL
     Indication: LIPASE INCREASED

REACTIONS (1)
  - Contrast media reaction [Recovered/Resolved]

NARRATIVE: CASE EVENT DATE: 20190815
